FAERS Safety Report 10254620 (Version 1)
Quarter: 2014Q2

REPORT INFORMATION
  Report Type: Spontaneous
  Country: US (occurrence: None)
  Receive Date: 20140620
  Receipt Date: 20140620
  Transmission Date: 20141212
  Serious: No
  Sender: FDA-Public Use
  Company Number: None

PATIENT
  Sex: Female

DRUGS (8)
  1. AFINITOR [Suspect]
     Indication: BREAST CANCER
     Route: 048
     Dates: start: 20140310, end: 201405
  2. EXEMESTANE [Concomitant]
  3. AMBIEN [Concomitant]
  4. XANAX [Concomitant]
  5. NEURONTIN [Concomitant]
  6. ZOFRAN [Concomitant]
  7. NORVASC [Concomitant]
  8. HCTZ [Concomitant]

REACTIONS (1)
  - Drug ineffective [None]
